FAERS Safety Report 4595347-2 (Version None)
Quarter: 2005Q1

REPORT INFORMATION
  Report Type: 
  Country: None (occurrence: None)
  Receive Date: 20050225
  Receipt Date: 20050225
  Transmission Date: 20050727
  Serious: Yes (Hospitalization)
  Sender: FDA-Public Use
  Company Number: None

PATIENT
  Sex: Female

DRUGS (5)
  1. AVASTIN [Suspect]
     Indication: METASTASIS
  2. AVASTIN [Suspect]
     Indication: RECTOSIGMOID CANCER
  3. FLUOROURACIL [Suspect]
  4. OXALIPLATIN [Concomitant]
  5. LEUCOVORIN CALCIUM [Concomitant]

REACTIONS (3)
  - ABDOMINAL PAIN [None]
  - INTESTINAL GANGRENE [None]
  - MESENTERIC VEIN THROMBOSIS [None]
